FAERS Safety Report 7797452-6 (Version None)
Quarter: 2011Q4

REPORT INFORMATION
  Report Type: 
  Country: None (occurrence: None)
  Receive Date: 20111003
  Receipt Date: 20110919
  Transmission Date: 20120403
  Serious: Yes (Other)
  Sender: FDA-Public Use
  Company Number: 2011AP001947

PATIENT
  Age: 43 Year
  Sex: Female

DRUGS (1)
  1. CITALOPRAM HYDROBROMIDE [Suspect]
     Indication: PRODUCT USED FOR UNKNOWN INDICATION

REACTIONS (7)
  - GASTROINTESTINAL DISORDER [None]
  - DIZZINESS POSTURAL [None]
  - CHROMATOPSIA [None]
  - DIZZINESS [None]
  - WEIGHT INCREASED [None]
  - ABNORMAL DREAMS [None]
  - INSOMNIA [None]
